FAERS Safety Report 16429355 (Version 1)
Quarter: 2019Q2

REPORT INFORMATION
  Report Type: Spontaneous
  Country: US (occurrence: US)
  Receive Date: 20190614
  Receipt Date: 20190614
  Transmission Date: 20190711
  Serious: No
  Sender: FDA-Public Use
  Company Number: US-GLAXOSMITHKLINE-US2019AMR106773

PATIENT
  Age: 77 Year
  Sex: Male

DRUGS (1)
  1. ALBUTEROL SULFATE INHALATION POWDER [Suspect]
     Active Substance: ALBUTEROL SULFATE
     Indication: LUNG INFECTION
     Dosage: 18G/200 METERED, UNK
     Route: 065
     Dates: start: 20190401

REACTIONS (3)
  - Product dose omission [Unknown]
  - Wrong technique in product usage process [Unknown]
  - Product use in unapproved indication [Unknown]
